FAERS Safety Report 9253220 (Version 2)
Quarter: 2013Q2

REPORT INFORMATION
  Report Type: Spontaneous
  Country: IT (occurrence: IT)
  Receive Date: 20130424
  Receipt Date: 20130612
  Transmission Date: 20140414
  Serious: Yes (Other)
  Sender: FDA-Public Use
  Company Number: IT-009507513-1304ITA013510

PATIENT
  Age: 73 Year
  Sex: Female

DRUGS (4)
  1. JANUVIA [Suspect]
     Indication: DIABETES MELLITUS
     Dosage: 50 MG, QD
     Route: 048
     Dates: start: 20130101, end: 20130213
  2. JANUVIA [Suspect]
     Dosage: UNK
     Route: 048
     Dates: start: 2013
  3. NOVO-NORM [Suspect]
     Indication: DIABETES MELLITUS
     Dosage: UNK, QD
     Route: 048
     Dates: start: 20130101, end: 20130213
  4. NOVO-NORM [Suspect]
     Dosage: UNK
     Route: 048
     Dates: start: 2013

REACTIONS (1)
  - Hypoglycaemia [Recovered/Resolved]
